FAERS Safety Report 7408664-5 (Version None)
Quarter: 2011Q2

REPORT INFORMATION
  Report Type: 
  Country: None (occurrence: None)
  Receive Date: 20110412
  Receipt Date: 20110331
  Transmission Date: 20111010
  Serious: Yes (Death, Other)
  Sender: FDA-Public Use
  Company Number: AU-CELGENEUS-008-FK228-11040002

PATIENT
  Sex: Male

DRUGS (1)
  1. ROMIDEPSIN [Suspect]
     Route: 065

REACTIONS (3)
  - HYPERCALCAEMIA [None]
  - RESPIRATORY TRACT OEDEMA [None]
  - DEATH [None]
